FAERS Safety Report 8402458-X (Version None)
Quarter: 2012Q2

REPORT INFORMATION
  Report Type: 
  Country: None (occurrence: None)
  Receive Date: 20120323
  Receipt Date: 20110112
  Transmission Date: 20120825
  Serious: Yes (Other)
  Sender: FDA-Public Use
  Company Number: 163-21880-11011191

PATIENT
  Age: 86 Year
  Sex: Female
  Weight: 48.99 kg

DRUGS (1)
  1. REVLIMID [Suspect]
     Indication: MULTIPLE MYELOMA
     Dosage: 15 MG, 1 IN 1 D, PO
     Route: 048
     Dates: start: 20101101, end: 20110104

REACTIONS (5)
  - MUSCLE SPASMS [None]
  - PARAESTHESIA ORAL [None]
  - TONGUE DISORDER [None]
  - PRURITUS [None]
  - RASH [None]
